FAERS Safety Report 14359492 (Version 1)
Quarter: 2018Q1

REPORT INFORMATION
  Report Type: Spontaneous
  Country: US (occurrence: US)
  Receive Date: 20180105
  Receipt Date: 20180105
  Transmission Date: 20180509
  Serious: Yes (Hospitalization)
  Sender: FDA-Public Use
  Company Number: US-BIOMARINAP-US-2017-116431

PATIENT
  Sex: Female
  Weight: 8.5 kg

DRUGS (1)
  1. KUVAN [Suspect]
     Active Substance: SAPROPTERIN DIHYDROCHLORIDE
     Indication: PHENYLKETONURIA
     Dosage: 100 MG, QD
     Route: 048
     Dates: start: 20160316

REACTIONS (4)
  - Amino acid level increased [Recovered/Resolved]
  - Lethargy [Recovered/Resolved]
  - Failure to thrive [Recovered/Resolved]
  - Weight gain poor [Recovered/Resolved]
